FAERS Safety Report 6221168-0 (Version None)
Quarter: 2009Q2

REPORT INFORMATION
  Report Type: 
  Country: None (occurrence: None)
  Receive Date: 20090610
  Receipt Date: 20090604
  Transmission Date: 20091009
  Serious: Yes (Hospitalization, Other)
  Sender: FDA-Public Use
  Company Number: GB-BAYER-200911042BNE

PATIENT
  Age: 62 Year
  Sex: Female

DRUGS (31)
  1. SORAFENIB [Suspect]
     Indication: NON-SMALL CELL LUNG CANCER
     Dosage: CYCLE 1
     Route: 048
     Dates: start: 20081217, end: 20090326
  2. GEMCITABINE [Suspect]
     Indication: NON-SMALL CELL LUNG CANCER
     Dosage: 2000MG DAY1 AND DAY 8
     Route: 042
     Dates: start: 20081217, end: 20090326
  3. CISPLATIN [Suspect]
     Indication: NON-SMALL CELL LUNG CANCER
     Route: 042
     Dates: start: 20081217, end: 20090326
  4. LIPITOR [Concomitant]
     Indication: HYPERCHOLESTEROLAEMIA
     Route: 048
     Dates: start: 19980101
  5. IBUPROFEN [Concomitant]
     Indication: ARTHRALGIA
     Dosage: 2 TABS
     Route: 048
     Dates: start: 20081201
  6. LANSOPRAZOLE [Concomitant]
     Indication: DYSPEPSIA
     Route: 048
     Dates: start: 20081222
  7. NULYTELY [Concomitant]
     Indication: CONSTIPATION
     Dosage: 1 SACHET
     Route: 048
     Dates: start: 20081224
  8. SENNOSIDE [Concomitant]
     Indication: CONSTIPATION
  9. ALBUTEROL [Concomitant]
     Indication: WHEEZING
     Dosage: 1-2 PUFFS DAILY AS REQUIRED.
     Route: 055
     Dates: start: 20090108
  10. BECLOMETHASONE DIPROPIONATE [Concomitant]
     Indication: DRUG USE FOR UNKNOWN INDICATION
     Route: 048
     Dates: start: 20090122
  11. ZOPICLONE [Concomitant]
     Indication: INSOMNIA
     Route: 048
     Dates: start: 20090219
  12. LOPERAMIDE HCL [Concomitant]
     Indication: DIARRHOEA
     Dates: start: 20090101, end: 20090101
  13. DEXAMETHASONE [Concomitant]
     Indication: PROPHYLAXIS OF NAUSEA AND VOMITING
     Dates: start: 20090212, end: 20090214
  14. DEXAMETHASONE [Concomitant]
     Dates: start: 20090304, end: 20090307
  15. DEXAMETHASONE [Concomitant]
     Dates: start: 20081218, end: 20081220
  16. DEXAMETHASONE [Concomitant]
     Dates: start: 20090302, end: 20090304
  17. DEXAMETHASONE [Concomitant]
     Dates: start: 20090108, end: 20090111
  18. DEXAMETHASONE [Concomitant]
     Dates: start: 20090206, end: 20090208
  19. METOCLOPRAMIDE [Concomitant]
     Indication: PROPHYLAXIS OF NAUSEA AND VOMITING
     Dates: start: 20090302, end: 20090304
  20. METOCLOPRAMIDE [Concomitant]
     Dates: start: 20081218, end: 20081220
  21. METOCLOPRAMIDE [Concomitant]
     Dates: start: 20090108, end: 20090111
  22. METOCLOPRAMIDE [Concomitant]
     Dates: start: 20090206, end: 20090208
  23. METOCLOPRAMIDE [Concomitant]
     Dates: start: 20090304, end: 20090307
  24. SANDO K EFFERVESCENT [Concomitant]
     Indication: BLOOD POTASSIUM DECREASED
     Dosage: 6 TABLETS
     Dates: start: 20081231, end: 20090105
  25. APPREPITANT [Concomitant]
     Indication: PROPHYLAXIS OF NAUSEA AND VOMITING
     Dosage: 125MG ON DAY 1, 80MGS ON DAY 2 AND 3
     Dates: start: 20090206, end: 20090208
  26. APPREPITANT [Concomitant]
     Dosage: 125MG ON DAY 1, 80MGS ON DAY 2 AND 3
     Dates: start: 20090108, end: 20090110
  27. APPREPITANT [Concomitant]
     Dosage: 125MG ON DAY 1, 80MGS ON DAY 2 AND 3
     Dates: start: 20090304, end: 20090307
  28. CLARITHROMYCIN [Concomitant]
     Indication: PROPHYLAXIS
     Dates: start: 20090420, end: 20090426
  29. ONDANSETRON [Concomitant]
     Indication: PROPHYLAXIS OF NAUSEA AND VOMITING
     Dates: start: 20090303, end: 20090303
  30. HYDROCORTISONE [Concomitant]
     Indication: ALLERGY PROPHYLAXIS
     Dates: start: 20090303, end: 20090303
  31. PIRITON [Concomitant]
     Indication: ALLERGY PROPHYLAXIS
     Dates: start: 20090303, end: 20090303

REACTIONS (4)
  - ANAEMIA [None]
  - DEEP VEIN THROMBOSIS [None]
  - DYSPNOEA [None]
  - WHEEZING [None]
